FAERS Safety Report 23198041 (Version 1)
Quarter: 2023Q4

REPORT INFORMATION
  Report Type: Spontaneous
  Country: RU (occurrence: None)
  Receive Date: 20231117
  Receipt Date: 20231117
  Transmission Date: 20240110
  Serious: Yes (Other)
  Sender: FDA-Public Use
  Company Number: 2023A258413

PATIENT
  Age: 57 Year
  Sex: Male
  Weight: 80 kg

DRUGS (5)
  1. SYMBICORT [Suspect]
     Active Substance: BUDESONIDE\FORMOTEROL FUMARATE DIHYDRATE
     Indication: Asthma
     Dosage: 80+4.5 MCG/INHALATION,TWO TIMES A DAY
     Route: 055
     Dates: start: 202308, end: 202308
  2. SYMBICORT [Suspect]
     Active Substance: BUDESONIDE\FORMOTEROL FUMARATE DIHYDRATE
     Indication: Asthma
     Dosage: 160+4.5 MCG/INHALATION,TWO TIMES A DAY
     Route: 055
     Dates: start: 202308, end: 202308
  3. PERINDOPRIL [Concomitant]
     Active Substance: PERINDOPRIL
  4. BISOPROLOL FUMARATE [Concomitant]
     Active Substance: BISOPROLOL FUMARATE
  5. UMIFENOVIR [Concomitant]
     Active Substance: UMIFENOVIR

REACTIONS (6)
  - Asthma [Unknown]
  - Pharyngitis [Unknown]
  - Respiratory tract infection viral [Unknown]
  - Drug ineffective [Unknown]
  - Product dose omission issue [Unknown]
  - Intentional product use issue [Unknown]
